APPROVED DRUG PRODUCT: BUTORPHANOL TARTRATE
Active Ingredient: BUTORPHANOL TARTRATE
Strength: 1MG/SPRAY
Dosage Form/Route: SPRAY, METERED;NASAL
Application: A075824 | Product #001 | TE Code: AB
Applicant: HIKMA PHARMACEUTICALS USA INC
Approved: Mar 12, 2002 | RLD: No | RS: Yes | Type: RX